FAERS Safety Report 7671603-6 (Version None)
Quarter: 2011Q3

REPORT INFORMATION
  Report Type: 
  Country: None (occurrence: None)
  Receive Date: 20110809
  Receipt Date: 20110803
  Transmission Date: 20111222
  Serious: Yes (Other)
  Sender: FDA-Public Use
  Company Number: US-PFIZER INC-2011178008

PATIENT
  Sex: Male
  Weight: 18 kg

DRUGS (5)
  1. SOLU-MEDROL [Suspect]
     Indication: ASTHMA
  2. SINGULAIR [Concomitant]
     Dosage: UNK
  3. AZITHROMYCIN [Concomitant]
     Dosage: UNK
  4. SOLU-MEDROL [Suspect]
     Indication: DYSPNOEA
     Dosage: 18 MG/KG, EVERY 6 HOURS
     Route: 042
     Dates: start: 20110801, end: 20110801
  5. XOPENEX [Concomitant]
     Dosage: UNK

REACTIONS (2)
  - HALLUCINATION [None]
  - PSYCHOTIC DISORDER [None]
